FAERS Safety Report 17571161 (Version 2)
Quarter: 2020Q2

REPORT INFORMATION
  Report Type: Spontaneous
  Country: US (occurrence: US)
  Receive Date: 20200323
  Receipt Date: 20200609
  Transmission Date: 20200713
  Serious: No
  Sender: FDA-Public Use
  Company Number: US-JNJFOC-20200332884

PATIENT
  Age: 57 Year
  Sex: Female

DRUGS (4)
  1. HYDROCODONE [Concomitant]
     Active Substance: HYDROCODONE
     Indication: PAIN
  2. TOPAMAX [Suspect]
     Active Substance: TOPIRAMATE
     Indication: MIGRAINE
     Route: 065
     Dates: end: 20200313
  3. SOMA [Concomitant]
     Active Substance: CARISOPRODOL
     Indication: CYSTITIS INTERSTITIAL
  4. SOMA [Concomitant]
     Active Substance: CARISOPRODOL
     Indication: TEMPOROMANDIBULAR JOINT SYNDROME

REACTIONS (1)
  - Migraine [Recovering/Resolving]

NARRATIVE: CASE EVENT DATE: 202003
